FAERS Safety Report 6702538-0 (Version None)
Quarter: 2010Q2

REPORT INFORMATION
  Report Type: 
  Country: None (occurrence: None)
  Receive Date: 20100429
  Receipt Date: 20100419
  Transmission Date: 20101027
  Serious: Yes (Other)
  Sender: FDA-Public Use
  Company Number: US-PFIZER INC-2010038014

PATIENT
  Sex: Male
  Weight: 92.971 kg

DRUGS (15)
  1. CHANTIX [Suspect]
     Indication: SMOKING CESSATION THERAPY
     Dosage: 0.5 MG, 1X/DAY
     Route: 048
     Dates: start: 20060101
  2. CHANTIX [Suspect]
     Dosage: 0.5 MG, 1X/DAY
     Dates: start: 20100301, end: 20100101
  3. LEXAPRO [Concomitant]
     Indication: DEPRESSION
     Dosage: 10 MG, 1X/DAY
     Route: 048
  4. ADVAIR DISKUS 100/50 [Concomitant]
     Indication: ASTHMA
     Dosage: UNK
  5. PROAIR HFA [Concomitant]
     Indication: ASTHMA
     Dosage: 90 UG, UNK
  6. CLONAZEPAM [Concomitant]
     Dosage: 1 MG (1 -2 TABLETS AT NIGHT AS NEEDED)
  7. PRAVASTATIN [Concomitant]
     Indication: BLOOD CHOLESTEROL INCREASED
     Dosage: 80 MG DAILY
  8. FENOFIBRATE [Concomitant]
     Indication: BLOOD TRIGLYCERIDES INCREASED
     Dosage: 145 MG, 1X/DAY
  9. OXYCODONE [Concomitant]
     Dosage: 80 MG, 1X/DAY
  10. OXYCODONE [Concomitant]
     Dosage: 60 MG, 2X/DAY
  11. OXYCODONE [Concomitant]
     Dosage: 5 MG TABLET DAILY AS NEEDED
  12. ATENOLOL [Concomitant]
     Indication: HYPERTENSION
     Dosage: 50 MG, 1X/DAY
  13. BACLOFEN [Concomitant]
     Indication: FIBROMYALGIA
     Dosage: 10 MG, 3X/DAY
  14. OXYCONTIN [Concomitant]
     Indication: FIBROMYALGIA
     Dosage: UNK
  15. TRICOR [Concomitant]
     Indication: BLOOD TRIGLYCERIDES INCREASED
     Dosage: UNK

REACTIONS (1)
  - SPEECH DISORDER [None]
